FAERS Safety Report 16213580 (Version 2)
Quarter: 2019Q2

REPORT INFORMATION
  Report Type: Report from Study
  Country: None (occurrence: US)
  Receive Date: 20190418
  Receipt Date: 20190531
  Transmission Date: 20190711
  Serious: Yes (Hospitalization)
  Sender: FDA-Public Use
  Company Number: US-ABBVIE-19K-163-2746938-00

PATIENT
  Sex: Male
  Weight: 127.57 kg

DRUGS (69)
  1. INFLUENZA [Concomitant]
     Active Substance: INFLUENZA VIRUS VACCINE
     Indication: PRODUCT USED FOR UNKNOWN INDICATION
     Dates: start: 20121001
  2. BENTYL [Concomitant]
     Active Substance: DICYCLOMINE HYDROCHLORIDE
     Indication: PAIN
     Dosage: TAKE 1 CAPSUIE (I10 MG) BY MOUTH 4 TLMES DAILY AS NEEDED
     Route: 048
  3. CYMBALTA [Concomitant]
     Active Substance: DULOXETINE HYDROCHLORIDE
     Route: 048
     Dates: start: 20190130, end: 20190209
  4. JARDIANCE [Concomitant]
     Active Substance: EMPAGLIFLOZIN
     Indication: PRODUCT USED FOR UNKNOWN INDICATION
     Dosage: TAKE 1 TABLET (10 MG) BY MOUTH DAILY EARLY MORNING.
     Route: 048
  5. CLARITIN [Concomitant]
     Active Substance: LORATADINE
     Indication: PRODUCT USED FOR UNKNOWN INDICATION
     Dosage: TAKE 10 MG BY MOUTH DAILY AT BEDTIME
     Route: 048
  6. RHEUMATREX [Concomitant]
     Active Substance: METHOTREXATE SODIUM
     Indication: PRODUCT USED FOR UNKNOWN INDICATION
     Dosage: TAKE 6 TABLETS (15 MG) BY MOUTH EVERY 7 DAYS.
     Route: 048
  7. PRILOSEC [Concomitant]
     Active Substance: OMEPRAZOLE MAGNESIUM
     Indication: PRODUCT USED FOR UNKNOWN INDICATION
     Dosage: AT MORNING TAKE 20 MG BY MOUTH 2 TIMES DAILY.
     Route: 048
  8. PROBIOTIC COMPLEX [Concomitant]
     Indication: PRODUCT USED FOR UNKNOWN INDICATION
     Dosage: MORNING, TAKE 1 TAB BY MOUTH DAILY.
     Route: 048
  9. PNEUMOCOCCAL 13 VALENT VACCINE [Concomitant]
     Active Substance: PNEUMOCOCCAL 13-VALENT CONJUGATE VACCINE
     Indication: PRODUCT USED FOR UNKNOWN INDICATION
     Dates: start: 20160324
  10. PNEUMOCOCCAL VACCINE POLYVALENT NOS [Concomitant]
     Active Substance: PNEUMOCOCCAL VACCINE POLYVALENT
     Indication: PRODUCT USED FOR UNKNOWN INDICATION
     Dosage: 23-VALENT
     Dates: start: 20140515
  11. NORVASC [Concomitant]
     Active Substance: AMLODIPINE BESYLATE
     Route: 048
  12. CALCIUM CITRATE [Concomitant]
     Active Substance: CALCIUM CITRATE
     Indication: PRODUCT USED FOR UNKNOWN INDICATION
     Dosage: TAKE 250 MG BY MOUTH DAILY
     Route: 048
  13. FLEXERIL [Concomitant]
     Active Substance: CYCLOBENZAPRINE HYDROCHLORIDE
     Indication: PRODUCT USED FOR UNKNOWN INDICATION
     Dosage: AT MORNING TAKE 10 MG BY MOUTH DAILY WITH BREAKFAST.
     Route: 048
     Dates: start: 20170630
  14. SURFAK [Concomitant]
     Indication: CONSTIPATION
     Dosage: TAKE 240 MG BY MOUTH 2 TIMES DAILY AS NEEDED
     Route: 048
  15. CYMBALTA [Concomitant]
     Active Substance: DULOXETINE HYDROCHLORIDE
     Route: 048
     Dates: start: 20190119, end: 20190129
  16. FERROUS SULFATE. [Concomitant]
     Active Substance: FERROUS SULFATE
     Indication: PRODUCT USED FOR UNKNOWN INDICATION
     Dosage: TAKE 325 MG BY MOUTH 2 TIMES DAILY.
     Route: 048
     Dates: start: 20170630
  17. FERROUS SULFATE. [Concomitant]
     Active Substance: FERROUS SULFATE
     Route: 048
  18. FISH OIL W/OMEGA-3 FATTY ACIDS [Concomitant]
     Active Substance: FISH OIL\OMEGA-3 FATTY ACIDS
     Indication: PRODUCT USED FOR UNKNOWN INDICATION
     Dosage: TAKE 1 CAPSULE BY MOUTH EVERY 12 HOURS.
     Route: 048
  19. NEURONTIN [Concomitant]
     Active Substance: GABAPENTIN
     Indication: PRODUCT USED FOR UNKNOWN INDICATION
     Dosage: TAKE 300 MG BY MOUTH 2 TABS IN AM, 3 TABS IN PM.
     Route: 048
     Dates: start: 20170630
  20. MELATONIN [Concomitant]
     Active Substance: MELATONIN
     Indication: PRODUCT USED FOR UNKNOWN INDICATION
     Dosage: TAKE 5 MG BY MOUTH NIGHTLY AS NEEDED.
     Route: 048
  21. PHENERGAN [Concomitant]
     Active Substance: PROMETHAZINE HYDROCHLORIDE
     Indication: VOMITING
  22. TRANSDERM SCOP [Concomitant]
     Active Substance: SCOPOLAMINE
     Indication: NAUSEA
     Dosage: APPLY TO SKIN AS DIRECTED
     Route: 062
  23. INFLUENZA [Concomitant]
     Active Substance: INFLUENZA VIRUS VACCINE
     Dates: start: 20151022
  24. INFLUENZA [Concomitant]
     Active Substance: INFLUENZA VIRUS VACCINE
     Dates: start: 20161014
  25. TDAP [Concomitant]
     Active Substance: TETANUS TOXOID, REDUCED DIPHTHERIA TOXOID AND ACELLULAR PERTUSSIS VACCINE ADSORBED, TDAP
     Indication: PRODUCT USED FOR UNKNOWN INDICATION
     Dates: start: 20160218
  26. COREG [Concomitant]
     Active Substance: CARVEDILOL
     Route: 048
  27. PROSCAR [Concomitant]
     Active Substance: FINASTERIDE
     Dosage: MORNING
     Route: 065
  28. FLONASE [Concomitant]
     Active Substance: FLUTICASONE PROPIONATE
     Route: 045
  29. FOLVITE [Concomitant]
     Active Substance: FOLIC ACID
     Indication: PRODUCT USED FOR UNKNOWN INDICATION
     Dosage: TAKE 1 MG BY MOUTH DAILY.
     Route: 048
     Dates: start: 20170630
  30. LEVAQUIN [Concomitant]
     Active Substance: LEVOFLOXACIN
     Indication: PRODUCT USED FOR UNKNOWN INDICATION
     Dosage: AT MORNING TAKE 1 TABLET (750 MG) BY MOUTH DAILY FOR 3 DAYS.
     Route: 048
  31. DIOVAN [Concomitant]
     Active Substance: VALSARTAN
     Route: 048
  32. NEURONTIN [Concomitant]
     Active Substance: GABAPENTIN
     Dosage: MORNING
     Route: 048
  33. NORCO [Concomitant]
     Active Substance: ACETAMINOPHEN\HYDROCODONE BITARTRATE
     Indication: PAIN
     Dosage: TAKE 1 TABLET BY MOUTH EVERY 6 HOURS AS NEEDED
     Route: 048
     Dates: start: 20170630
  34. PLAQUENIL [Concomitant]
     Active Substance: HYDROXYCHLOROQUINE SULFATE
     Route: 048
  35. PHENERGAN [Concomitant]
     Active Substance: PROMETHAZINE HYDROCHLORIDE
     Indication: NAUSEA
     Dosage: TAKE 25 MG BY MOUTH EVERY 6 HOURS AS NEEDED FOR NAUSEA/EMESIS.
     Route: 048
  36. FLOMAX [Concomitant]
     Active Substance: TAMSULOSIN HYDROCHLORIDE
     Route: 048
  37. VITAMIN B COMPLEX [Concomitant]
     Active Substance: CYANOCOBALAMIN\DEXPANTHENOL\NIACINAMIDE\PYRIDOXINE HYDROCHLORIDE\RIBOFLAVIN 5^-PHOSPHATE SODIUM\THIAMINE HYDROCHLORIDE\VITAMIN B COMPLEX
     Indication: PRODUCT USED FOR UNKNOWN INDICATION
     Dosage: TAKE 1 TABLET BY MOUTH DAILY.
     Route: 048
  38. NORVASC [Concomitant]
     Active Substance: AMLODIPINE BESYLATE
     Indication: PRODUCT USED FOR UNKNOWN INDICATION
     Dosage: TAKE 10 MG BY MOUTH DAILY.
     Route: 048
     Dates: start: 20170630
  39. PLAQUENIL [Concomitant]
     Active Substance: HYDROXYCHLOROQUINE SULFATE
     Indication: PRODUCT USED FOR UNKNOWN INDICATION
     Dosage: TAKE 1 TABLET (200 MG) BY MOUTH 2 TIMES DAILY.
     Route: 048
     Dates: start: 20170630
  40. GLUCOPHAGE [Concomitant]
     Active Substance: METFORMIN HYDROCHLORIDE
     Indication: PRODUCT USED FOR UNKNOWN INDICATION
     Dosage: TAKE 500 MG BY MOUTH 2 TIMES DAILY WITH MEALS AT MORNING
     Route: 048
  41. MULTIVITAL [Concomitant]
     Indication: PRODUCT USED FOR UNKNOWN INDICATION
     Dosage: TAKE BY MOUTH DAILY AT MORNING
     Route: 048
  42. MYSOLINE [Concomitant]
     Active Substance: PRIMIDONE
     Route: 048
  43. HUMIRA [Suspect]
     Active Substance: ADALIMUMAB
     Indication: CROHN^S DISEASE
     Dosage: TAKING HUMIRA FOR MORE THAN TWO YEARS
     Route: 058
  44. INFLUENZA [Concomitant]
     Active Substance: INFLUENZA VIRUS VACCINE
     Dates: start: 20131001
  45. INFLUENZA [Concomitant]
     Active Substance: INFLUENZA VIRUS VACCINE
     Dates: start: 20141001
  46. PNEUMOCOCCAL VACCINE POLYVALENT NOS [Concomitant]
     Active Substance: PNEUMOCOCCAL VACCINE POLYVALENT
     Indication: PRODUCT USED FOR UNKNOWN INDICATION
     Dates: start: 20090105
  47. CYMBALTA [Concomitant]
     Active Substance: DULOXETINE HYDROCHLORIDE
     Indication: PRODUCT USED FOR UNKNOWN INDICATION
     Route: 048
     Dates: start: 20170630
  48. FLONASE [Concomitant]
     Active Substance: FLUTICASONE PROPIONATE
     Indication: PRODUCT USED FOR UNKNOWN INDICATION
     Dosage: AT MORNING 1 SPRAY IN EACH NOSTRIL DAILY
     Route: 045
     Dates: start: 20170630
  49. ZOFRAN [Concomitant]
     Active Substance: ONDANSETRON HYDROCHLORIDE
     Indication: NAUSEA
     Dosage: TAKE BY MOUTH EVERY 8 HOURS AS NEEDED, DISSOLVE TABLET ON TOP OF TONGUE, THEN SWALLOW.
     Route: 048
  50. ZOFRAN [Concomitant]
     Active Substance: ONDANSETRON HYDROCHLORIDE
     Indication: VOMITING
  51. FIBERCON [Concomitant]
     Active Substance: CALCIUM POLYCARBOPHIL
     Indication: PRODUCT USED FOR UNKNOWN INDICATION
     Dosage: TAKE 625 MG BY MOUTH EVERY 12 HOURS
     Route: 048
  52. REQUIP [Concomitant]
     Active Substance: ROPINIROLE HYDROCHLORIDE
     Dosage: BEDTIME
     Route: 048
  53. COREG [Concomitant]
     Active Substance: CARVEDILOL
     Indication: PRODUCT USED FOR UNKNOWN INDICATION
     Dosage: AT MORNING TAKE 1 TABLET (3.125 MG) BY MOUTH 2 TIMES DAILY.
     Route: 048
     Dates: start: 20170630
  54. BAYER ASPIRIN [Concomitant]
     Active Substance: ASPIRIN
     Indication: PRODUCT USED FOR UNKNOWN INDICATION
     Dosage: AT MORNING TAKE BY MOUTH DAILY AT BEDTIME .
     Route: 048
  55. FLEXERIL [Concomitant]
     Active Substance: CYCLOBENZAPRINE HYDROCHLORIDE
     Dosage: MORNING
     Route: 048
  56. BENTYL [Concomitant]
     Active Substance: DICYCLOMINE HYDROCHLORIDE
     Indication: NAUSEA
  57. CYMBALTA [Concomitant]
     Active Substance: DULOXETINE HYDROCHLORIDE
     Route: 048
     Dates: start: 20190210, end: 20190219
  58. NORCO [Concomitant]
     Active Substance: ACETAMINOPHEN\HYDROCODONE BITARTRATE
     Dosage: 10-325 MG AS NEEDED
     Route: 048
  59. MACROBID [Concomitant]
     Active Substance: NITROFURANTOIN\NITROFURANTOIN MONOHYDRATE
     Indication: PRODUCT USED FOR UNKNOWN INDICATION
     Dosage: TAKE 50 MG BY MOUTH DAILY.
     Route: 048
  60. MYSOLINE [Concomitant]
     Active Substance: PRIMIDONE
     Indication: PRODUCT USED FOR UNKNOWN INDICATION
     Dosage: TAKE 50 MG BY MOUTH DAILY AT BEDTIME.
     Route: 048
     Dates: start: 20170629
  61. DIOVAN [Concomitant]
     Active Substance: VALSARTAN
     Indication: PRODUCT USED FOR UNKNOWN INDICATION
     Dosage: AT MORNING TAKE 1 TABLET (160 MG) BY MOUTH DAILY.
     Route: 048
     Dates: start: 20170630
  62. ANDRODERM [Concomitant]
     Active Substance: TESTOSTERONE
     Indication: PRODUCT USED FOR UNKNOWN INDICATION
     Dosage: APPLY 5 MG TO SKIN AS DIRECTED 1 TIME DAILY AS NEEDED.
     Route: 062
  63. PROSCAR [Concomitant]
     Active Substance: FINASTERIDE
     Indication: PRODUCT USED FOR UNKNOWN INDICATION
     Route: 065
     Dates: start: 20170630
  64. FOLVITE [Concomitant]
     Active Substance: FOLIC ACID
     Route: 048
  65. MIRALAX [Concomitant]
     Active Substance: POLYETHYLENE GLYCOL 3350
     Indication: DIARRHOEA
     Dosage: AT MORNING 1 SCOOP (17 GRAMS) IN 8 OUNCE OF FLUID AND DRINK ENTIRE LIQUID
     Route: 048
  66. PRAVACHOL [Concomitant]
     Active Substance: PRAVASTATIN SODIUM
     Indication: PRODUCT USED FOR UNKNOWN INDICATION
     Dosage: TAKE 40 MG BY MOUTH DAILY LATE
     Route: 048
  67. REQUIP [Concomitant]
     Active Substance: ROPINIROLE HYDROCHLORIDE
     Indication: PRODUCT USED FOR UNKNOWN INDICATION
     Dosage: TAKE 2 TABLET (4 MG) BY MOUTH DAILY AT BEDTIME.
     Route: 048
     Dates: start: 20170629
  68. FLOMAX [Concomitant]
     Active Substance: TAMSULOSIN HYDROCHLORIDE
     Indication: PRODUCT USED FOR UNKNOWN INDICATION
     Dosage: TAKE 0.4 MG BY MOUTH DAILY AT BEDTIME.
     Route: 048
     Dates: start: 20170629
  69. TANZEUM [Concomitant]
     Active Substance: ALBIGLUTIDE
     Indication: PRODUCT USED FOR UNKNOWN INDICATION
     Dosage: AS DIRECTED,  INJECT 50 MG BY SUBCUTANEOUS INJECTION EVERY TUESDAY
     Route: 058

REACTIONS (11)
  - Diarrhoea [Unknown]
  - Hypertension [Unknown]
  - Type 2 diabetes mellitus [Unknown]
  - Neuropathy peripheral [Unknown]
  - Immune system disorder [Unknown]
  - Coronary artery disease [Unknown]
  - Crohn^s disease [Unknown]
  - Pulmonary embolism [Unknown]
  - Bile duct obstruction [Recovered/Resolved]
  - Blood pressure decreased [Unknown]
  - Dizziness [Unknown]
